FAERS Safety Report 4676916-8 (Version None)
Quarter: 2005Q2

REPORT INFORMATION
  Report Type: 
  Country: None (occurrence: None)
  Receive Date: 20050526
  Receipt Date: 20050414
  Transmission Date: 20051028
  Serious: Yes (Disabling)
  Sender: FDA-Public Use
  Company Number: WAES 0504USA02279

PATIENT
  Age: 53 Year
  Sex: Female

DRUGS (4)
  1. VYTORIN [Suspect]
     Indication: LOW DENSITY LIPOPROTEIN INCREASED
     Dosage: 10-20MG/DAILY/PO
     Route: 048
     Dates: start: 20050110, end: 20050311
  2. LAMICTAL [Concomitant]
  3. MOTRIN [Concomitant]
  4. TRAZODONE HYDROCHLORIDE [Concomitant]

REACTIONS (1)
  - MYALGIA [None]
